FAERS Safety Report 19301276 (Version 1)
Quarter: 2021Q2

REPORT INFORMATION
  Report Type: Spontaneous
  Country: US (occurrence: US)
  Receive Date: 20210525
  Receipt Date: 20210525
  Transmission Date: 20210717
  Serious: Yes (Hospitalization)
  Sender: FDA-Public Use
  Company Number: US-LUPIN PHARMACEUTICALS INC.-2021-07725

PATIENT
  Age: 34 Year
  Sex: Female

DRUGS (10)
  1. CALCIUM [Suspect]
     Active Substance: CALCIUM
     Dosage: UNK (CALCIUM?GLUCONATE; DRIP)
     Route: 042
  2. ERGOCALCIFEROL. [Suspect]
     Active Substance: ERGOCALCIFEROL
     Indication: HYPOPARATHYROIDISM
     Dosage: 50000 INTERNATIONAL UNIT (WEEKLY))
     Route: 065
  3. CALCIUM [Suspect]
     Active Substance: CALCIUM
     Dosage: 3 DOSAGE FORM, QID (CALCIUM CARBONATE 750MG THREE TABLETS, FOUR TIMES DAILY)
     Route: 048
  4. CALCIUM [Suspect]
     Active Substance: CALCIUM
     Indication: HYPOPARATHYROIDISM
     Dosage: UNK
     Route: 048
  5. CALCIUM [Suspect]
     Active Substance: CALCIUM
     Dosage: 1000 MILLIGRAM, QID (CALCIUM CITRATE 500MG TWO TABLETS FOUR TIMES DAILY)
     Route: 048
  6. VITAMIN D [Suspect]
     Active Substance: VITAMIN D NOS
     Indication: HYPOPARATHYROIDISM
     Dosage: UNK
     Route: 065
  7. CALCIUM [Suspect]
     Active Substance: CALCIUM
     Dosage: 2 DOSAGE FORM, TID (CALCIUM?ACETATE 2 TABLETS, 3 TIMES DAILY)
     Route: 048
  8. MAGNESIUM CITRATE. [Suspect]
     Active Substance: MAGNESIUM CITRATE
     Indication: HYPOPARATHYROIDISM
     Dosage: 300 MILLIGRAM, QD
     Route: 065
  9. HYDROCHLOROTHIAZIDE. [Suspect]
     Active Substance: HYDROCHLOROTHIAZIDE
     Indication: HYPOPARATHYROIDISM
     Dosage: 50 MILLIGRAM, QD
     Route: 065
  10. CALCITRIOL. [Suspect]
     Active Substance: CALCITRIOL
     Indication: HYPOPARATHYROIDISM
     Dosage: 0.5 MILLIGRAM, QID
     Route: 065

REACTIONS (1)
  - Drug ineffective [Unknown]
